FAERS Safety Report 18801779 (Version 1)
Quarter: 2021Q1

REPORT INFORMATION
  Report Type: Spontaneous
  Country: US (occurrence: US)
  Receive Date: 20210128
  Receipt Date: 20210128
  Transmission Date: 20210419
  Serious: Yes (Other)
  Sender: FDA-Public Use
  Company Number: US-UPSHER-SMITH LABORATORIES, LLC-2021USL00014

PATIENT
  Age: 82 Year
  Sex: Female
  Weight: 66.67 kg

DRUGS (12)
  1. JANTOVEN [Suspect]
     Active Substance: WARFARIN SODIUM
     Dosage: 6 MG, 4X/WEEK IN THE EVENING; ALTERNATING WITH 3 MG 3X/WEEK
     Route: 048
     Dates: start: 2008, end: 20201214
  2. BUMETANIDE. [Concomitant]
     Active Substance: BUMETANIDE
     Dosage: UNK, 3X/WEEK
  3. ZINC CREAM [Concomitant]
     Route: 061
  4. JANTOVEN [Suspect]
     Active Substance: WARFARIN SODIUM
     Indication: ARRHYTHMIA
     Dosage: 3 MG, 3X/WEEK IN THE EVENING; ALTERNATING WITH 6 MG 4X/WEEK
     Route: 048
     Dates: start: 2008, end: 20201214
  5. JANTOVEN [Suspect]
     Active Substance: WARFARIN SODIUM
     Dosage: 3 MG, 4X/WEEK IN THE EVENING; ALTERNATING WITH 6 MG 3X/WEEK
     Route: 048
     Dates: start: 20201215
  6. BISOPROLOL [Concomitant]
     Active Substance: BISOPROLOL
     Dosage: UNK MG
  7. MAGNESIUM CITRATE. [Concomitant]
     Active Substance: MAGNESIUM CITRATE
     Dosage: 300 MG, 3X/WEEK
  8. ZINC. [Concomitant]
     Active Substance: ZINC
     Dosage: 22 MG, 3X/WEEK
     Route: 048
  9. VITAMIN D3 [Concomitant]
     Active Substance: CHOLECALCIFEROL
  10. OMEGA RED [Concomitant]
     Dosage: 350 MG
  11. JANTOVEN [Suspect]
     Active Substance: WARFARIN SODIUM
     Dosage: 6 MG, 3X/WEEK IN THE EVENING; ALTERNATING WITH 3 MG 4X/WEEK
     Route: 048
     Dates: start: 20201215
  12. SYMBICORT [Concomitant]
     Active Substance: BUDESONIDE\FORMOTEROL FUMARATE DIHYDRATE

REACTIONS (7)
  - Impaired healing [Not Recovered/Not Resolved]
  - Peripheral venous disease [Not Recovered/Not Resolved]
  - Drug interaction [Recovered/Resolved]
  - Cardiac failure [Not Recovered/Not Resolved]
  - Chronic obstructive pulmonary disease [Not Recovered/Not Resolved]
  - Arterial insufficiency [Not Recovered/Not Resolved]
  - International normalised ratio increased [Not Recovered/Not Resolved]

NARRATIVE: CASE EVENT DATE: 2018
